FAERS Safety Report 5830447-8 (Version None)
Quarter: 2008Q3

REPORT INFORMATION
  Report Type: 
  Country: None (occurrence: None)
  Receive Date: 20080801
  Receipt Date: 20080721
  Transmission Date: 20090109
  Serious: Yes (Death)
  Sender: FDA-Public Use
  Company Number: FR-PFIZER INC-2008061273

PATIENT
  Sex: Male

DRUGS (7)
  1. FARLUTAL [Suspect]
     Indication: NON-SMALL CELL LUNG CANCER
     Dosage: FREQ:ONCE DAILY
     Route: 048
  2. FENTANYL-100 [Suspect]
     Indication: CANCER PAIN
     Route: 062
  3. TAXOTERE [Suspect]
     Indication: NON-SMALL CELL LUNG CANCER
     Route: 042
     Dates: start: 20080101, end: 20080218
  4. SOLUPRED [Suspect]
     Indication: NON-SMALL CELL LUNG CANCER
     Route: 048
  5. EPREX [Suspect]
     Indication: ANAEMIA
  6. TARDYFERON [Suspect]
     Indication: ANAEMIA
     Route: 048
  7. BI-PROFENID [Suspect]
     Indication: PAIN
     Route: 048

REACTIONS (1)
  - ACUTE RESPIRATORY FAILURE [None]
